FAERS Safety Report 11145387 (Version 1)
Quarter: 2015Q2

REPORT INFORMATION
  Report Type: Spontaneous
  Country: US (occurrence: None)
  Receive Date: 20150527
  Receipt Date: 20150527
  Transmission Date: 20150821
  Serious: Yes (Other)
  Sender: FDA-Public Use
  Company Number: None

PATIENT
  Age: 60 Year
  Sex: Male

DRUGS (1)
  1. VIEKIRA PAK [Suspect]
     Active Substance: DASABUVIR\OMBITASVIR\PARITAPREVIR\RITONAVIR
     Indication: HEPATITIS C
     Dosage: 1 PACKAGE PER DAY BID  ORAL
     Route: 048

REACTIONS (3)
  - Dyspnoea [None]
  - Therapy cessation [None]
  - Peripheral swelling [None]

NARRATIVE: CASE EVENT DATE: 20150506
